FAERS Safety Report 16972537 (Version 3)
Quarter: 2020Q1

REPORT INFORMATION
  Report Type: Spontaneous
  Country: HU (occurrence: HU)
  Receive Date: 20191030
  Receipt Date: 20200224
  Transmission Date: 20200409
  Serious: Yes (Other)
  Sender: FDA-Public Use
  Company Number: HU-ROCHE-2445738

PATIENT
  Age: 37 Year
  Sex: Female

DRUGS (2)
  1. TECENTRIQ [Suspect]
     Active Substance: ATEZOLIZUMAB
     Indication: TRIPLE NEGATIVE BREAST CANCER
     Dosage: ON THE 1ST AND 15TH DAY OF THERAPY/ 28 DAYS CYCLES
     Route: 041
     Dates: start: 20190805
  2. NAB-PACLITAXEL [Suspect]
     Active Substance: PACLITAXEL
     Indication: TRIPLE NEGATIVE BREAST CANCER
     Dosage: ON 1ST, 8TH AND 15TH DAYS OF THERAPY / 28 DAYS CYCLES
     Route: 042
     Dates: start: 20190805

REACTIONS (1)
  - Autoimmune thyroid disorder [Unknown]
